FAERS Safety Report 24176559 (Version 1)
Quarter: 2024Q3

REPORT INFORMATION
  Report Type: Spontaneous
  Country: US (occurrence: US)
  Receive Date: 20240806
  Receipt Date: 20240806
  Transmission Date: 20241017
  Serious: No
  Sender: UNITED THERAPEUTICS
  Company Number: US-UNITED THERAPEUTICS-UNT-2024-023500

PATIENT
  Sex: Female
  Weight: 47.982 kg

DRUGS (44)
  1. REMODULIN [Suspect]
     Active Substance: TREPROSTINIL
     Indication: Pulmonary arterial hypertension
     Dosage: 0.045 ?G/KG, CONTINUING
     Route: 041
  2. REMODULIN [Suspect]
     Active Substance: TREPROSTINIL
     Dosage: UNK, CONTINUING
     Route: 041
  3. DICYCLOMINE HYDROCHLORIDE [Concomitant]
     Active Substance: DICYCLOMINE HYDROCHLORIDE
     Indication: Product used for unknown indication
  4. ERYTHROMYCIN [Concomitant]
     Active Substance: ERYTHROMYCIN
     Indication: Product used for unknown indication
  5. LEVOTHYROXINE SODIUM [Concomitant]
     Active Substance: LEVOTHYROXINE SODIUM
     Indication: Product used for unknown indication
  6. SULFAMETHOXAZOLE AND TRIMETHOPRIM [Concomitant]
     Active Substance: SULFAMETHOXAZOLE\TRIMETHOPRIM
     Indication: Product used for unknown indication
  7. ACETAMINOPHEN\HYDROCODONE [Concomitant]
     Active Substance: ACETAMINOPHEN\HYDROCODONE
     Indication: Product used for unknown indication
  8. VITAMIN D3 [Concomitant]
     Active Substance: CHOLECALCIFEROL
     Indication: Product used for unknown indication
  9. FLUOXETINE HYDROCHLORIDE [Concomitant]
     Active Substance: FLUOXETINE HYDROCHLORIDE
     Indication: Product used for unknown indication
  10. MAGNESIUM OXIDE [Concomitant]
     Active Substance: MAGNESIUM OXIDE
     Indication: Product used for unknown indication
  11. MELATONIN [Concomitant]
     Active Substance: MELATONIN
     Indication: Product used for unknown indication
  12. TAMSULOSIN HYDROCHLORIDE [Concomitant]
     Active Substance: TAMSULOSIN HYDROCHLORIDE
     Indication: Product used for unknown indication
  13. TIZANIDINE HYDROCHLORIDE [Concomitant]
     Active Substance: TIZANIDINE HYDROCHLORIDE
     Indication: Product used for unknown indication
  14. SODIUM CHLORIDE [Concomitant]
     Active Substance: SODIUM CHLORIDE
     Indication: Product used for unknown indication
  15. WELCHOL [Concomitant]
     Active Substance: COLESEVELAM HYDROCHLORIDE
     Indication: Product used for unknown indication
  16. KETOCONAZOLE [Concomitant]
     Active Substance: KETOCONAZOLE
     Indication: Product used for unknown indication
  17. DIETARY SUPPLEMENT [Concomitant]
     Active Substance: DIETARY SUPPLEMENT
     Indication: Product used for unknown indication
  18. CYANOCOBALAMIN [Concomitant]
     Active Substance: CYANOCOBALAMIN
     Indication: Product used for unknown indication
  19. ALBUTEROL SULFATE [Concomitant]
     Active Substance: ALBUTEROL SULFATE
     Indication: Product used for unknown indication
  20. ASPIRIN [Concomitant]
     Active Substance: ASPIRIN
     Indication: Product used for unknown indication
     Dosage: LOW DOSE
  21. PROBIOTICS NOS [Concomitant]
     Active Substance: PROBIOTICS NOS
     Indication: Product used for unknown indication
  22. BIOTIN [Concomitant]
     Active Substance: BIOTIN
     Indication: Product used for unknown indication
  23. BUPROPION HYDROCHLORIDE [Concomitant]
     Active Substance: BUPROPION HYDROCHLORIDE
     Indication: Product used for unknown indication
  24. TRELEGY ELLIPTA [Concomitant]
     Active Substance: FLUTICASONE FUROATE\UMECLIDINIUM BROMIDE\VILANTEROL TRIFENATATE
     Indication: Product used for unknown indication
  25. OMEGA-3 ACIDS [Concomitant]
     Active Substance: OMEGA-3 FATTY ACIDS
     Indication: Product used for unknown indication
  26. FLUTICASONE PROPIONATE [Concomitant]
     Active Substance: FLUTICASONE PROPIONATE
     Indication: Product used for unknown indication
  27. SORBITOL [Concomitant]
     Active Substance: SORBITOL
     Indication: Product used for unknown indication
  28. VITAMINS [Concomitant]
     Active Substance: VITAMINS
     Indication: Product used for unknown indication
  29. TRAMADOL HCL [Concomitant]
     Active Substance: TRAMADOL HYDROCHLORIDE
     Indication: Product used for unknown indication
  30. ZOLPIDEM TARTRATE [Concomitant]
     Active Substance: ZOLPIDEM TARTRATE
     Indication: Product used for unknown indication
  31. CALCIUM [Concomitant]
     Active Substance: CALCIUM
     Indication: Product used for unknown indication
  32. DEMANNOSE [Concomitant]
     Active Substance: DEMANNOSE
     Indication: Product used for unknown indication
  33. DICLOFENAC SODIUM\MISOPROSTOL [Concomitant]
     Active Substance: DICLOFENAC SODIUM\MISOPROSTOL
     Indication: Product used for unknown indication
  34. PREDNISONE [Concomitant]
     Active Substance: PREDNISONE
     Indication: Product used for unknown indication
  35. OXYGEN [Concomitant]
     Active Substance: OXYGEN
     Indication: Product used for unknown indication
  36. CETIRIZINE HCL [Concomitant]
     Active Substance: CETIRIZINE HYDROCHLORIDE
     Indication: Product used for unknown indication
  37. HYDROXYZINE HYDROCHLORIDE [Concomitant]
     Active Substance: HYDROXYZINE HYDROCHLORIDE
     Indication: Product used for unknown indication
  38. OMEPRAZOLE [Concomitant]
     Active Substance: OMEPRAZOLE
     Indication: Product used for unknown indication
  39. HERBALS\TURMERIC [Concomitant]
     Active Substance: HERBALS\TURMERIC
     Indication: Product used for unknown indication
  40. ALPRAZOLAM [Concomitant]
     Active Substance: ALPRAZOLAM
     Indication: Product used for unknown indication
  41. DEXLANSOPRAZOLE [Concomitant]
     Active Substance: DEXLANSOPRAZOLE
     Indication: Product used for unknown indication
  42. FERROUS SULFATE [Concomitant]
     Active Substance: FERROUS SULFATE
     Indication: Product used for unknown indication
  43. PHENAZOPYRIDINE HCL [Concomitant]
     Active Substance: PHENAZOPYRIDINE HYDROCHLORIDE
     Indication: Product used for unknown indication
  44. ROPINIROLE HYDROCHLORIDE [Concomitant]
     Active Substance: ROPINIROLE HYDROCHLORIDE
     Indication: Product used for unknown indication

REACTIONS (6)
  - Fatigue [Unknown]
  - Decreased activity [Unknown]
  - Device use error [Unknown]
  - Device alarm issue [Unknown]
  - Device breakage [Recovered/Resolved]
  - Device leakage [Recovered/Resolved]
